FAERS Safety Report 21311881 (Version 1)
Quarter: 2022Q3

REPORT INFORMATION
  Report Type: Spontaneous
  Country: US (occurrence: None)
  Receive Date: 20220909
  Receipt Date: 20220909
  Transmission Date: 20221027
  Serious: No
  Sender: FDA-Public Use
  Company Number: US-ARIS GLOBAL-202203-0568

PATIENT
  Sex: Female

DRUGS (32)
  1. OXERVATE [Suspect]
     Active Substance: CENEGERMIN-BKBJ
     Indication: Neurotrophic keratopathy
     Route: 047
     Dates: start: 20220323
  2. COLESTID [Concomitant]
     Active Substance: COLESTIPOL HYDROCHLORIDE
  3. EDLUAR [Concomitant]
     Active Substance: ZOLPIDEM TARTRATE
  4. ASPIRIN [Concomitant]
     Active Substance: ASPIRIN
  5. FLONASE ALLERGY RELIEF [Concomitant]
     Active Substance: FLUTICASONE PROPIONATE
  6. CYANOCOBALAMIN [Concomitant]
     Active Substance: CYANOCOBALAMIN
  7. GABAPENTIN [Concomitant]
     Active Substance: GABAPENTIN
  8. ZINC [Concomitant]
     Active Substance: ZINC
  9. VITAMIN C [Concomitant]
     Active Substance: ASCORBIC ACID
  10. ROSUVASTATIN CALCIUM [Concomitant]
     Active Substance: ROSUVASTATIN CALCIUM
  11. VITAMIN D3 [Concomitant]
     Active Substance: CHOLECALCIFEROL
  12. DIETARY SUPPLEMENT\HERBALS\MILK THISTLE [Concomitant]
     Active Substance: DIETARY SUPPLEMENT\HERBALS\MILK THISTLE
  13. BUMETANIDE [Concomitant]
     Active Substance: BUMETANIDE
  14. MELOXICAM [Concomitant]
     Active Substance: MELOXICAM
  15. AZASITE [Concomitant]
     Active Substance: AZITHROMYCIN MONOHYDRATE
  16. LOTEMAX [Concomitant]
     Active Substance: LOTEPREDNOL ETABONATE
  17. ALREX [Concomitant]
     Active Substance: LOTEPREDNOL ETABONATE
  18. HERBALS [Concomitant]
     Active Substance: HERBALS
  19. XYZAL [Concomitant]
     Active Substance: LEVOCETIRIZINE DIHYDROCHLORIDE
  20. CEQUA [Concomitant]
     Active Substance: CYCLOSPORINE
  21. HERBALS\TURMERIC [Concomitant]
     Active Substance: HERBALS\TURMERIC
  22. POTASSIUM CHLORIDE [Concomitant]
     Active Substance: POTASSIUM CHLORIDE
  23. CALCIUM MAGNESIUM +D [Concomitant]
  24. VITAMINS [Concomitant]
     Active Substance: VITAMINS
  25. ACTHAR [Concomitant]
     Active Substance: CORTICOTROPIN
  26. DULOXETINE HYDROCHLORIDE [Concomitant]
     Active Substance: DULOXETINE HYDROCHLORIDE
  27. MINIVELLE [Concomitant]
     Active Substance: ESTRADIOL
  28. EYSUVIS [Concomitant]
     Active Substance: LOTEPREDNOL ETABONATE
  29. ZERVIATE [Concomitant]
     Active Substance: CETIRIZINE HYDROCHLORIDE
  30. OMEGA 3 +VITAMIN D3 [Concomitant]
  31. SLIT IMMUNOTHERAPY [Concomitant]
  32. BLOOD SERUM [Concomitant]

REACTIONS (5)
  - Eye pain [Unknown]
  - Periorbital swelling [Unknown]
  - Eye inflammation [Unknown]
  - Headache [Unknown]
  - Ocular hyperaemia [Unknown]
